FAERS Safety Report 7945657-3 (Version None)
Quarter: 2011Q4

REPORT INFORMATION
  Report Type: 
  Country: None (occurrence: None)
  Receive Date: 20111129
  Receipt Date: 20111121
  Transmission Date: 20120403
  Serious: Yes (Life-Threatening, Other)
  Sender: FDA-Public Use
  Company Number: US-CELGENEUS-163-21880-11100931

PATIENT
  Sex: Male

DRUGS (20)
  1. CLONIDINE [Concomitant]
     Indication: SINUS BRADYCARDIA
     Route: 065
  2. CLONIDINE [Concomitant]
     Dosage: 0.1
     Route: 048
  3. ATIVAN [Concomitant]
     Indication: ANXIETY
     Dosage: 1 MILLIGRAM
     Route: 065
  4. FISH OIL [Concomitant]
     Route: 065
  5. REVLIMID [Suspect]
     Indication: MULTIPLE MYELOMA
     Dosage: 15 MILLIGRAM
     Route: 048
     Dates: start: 20110812, end: 20110922
  6. ASPIRIN [Concomitant]
     Indication: HYPERTENSION
     Dosage: 325 MILLIGRAM
     Route: 048
  7. NORVASC [Concomitant]
     Indication: HYPERTENSION
     Dosage: 10 MILLIGRAM
     Route: 065
  8. NORVASC [Concomitant]
     Dosage: 10MG IN THE MORNING AND 5MG AT NIGHT
     Route: 065
  9. COZAAR [Concomitant]
     Dosage: 100 MILLIGRAM
     Route: 048
  10. REVLIMID [Suspect]
     Dosage: 15 MILLIGRAM
     Route: 048
     Dates: start: 20110924
  11. AMLODIPINE BESYLATE [Concomitant]
     Indication: HYPERTENSION
     Dosage: 10 MILLIGRAM
     Route: 048
  12. LANTUS [Concomitant]
     Dosage: 34-40 UNITS
     Route: 058
  13. COMPAZINE [Concomitant]
     Indication: VOMITING
  14. HUMALOG [Concomitant]
     Route: 065
  15. DEXAMETHASONE [Concomitant]
     Route: 065
  16. COMPAZINE [Concomitant]
     Indication: NAUSEA
     Dosage: 10 MILLIGRAM
     Route: 048
  17. CIPROFLOXACIN [Concomitant]
     Route: 065
  18. LABETALOL HCL [Concomitant]
     Indication: HYPERTENSION
     Dosage: 300 MILLIGRAM
     Route: 048
  19. LABETALOL HCL [Concomitant]
     Dosage: 200 MILLIGRAM
     Route: 048
  20. ACYCLOVIR [Concomitant]
     Indication: PROPHYLAXIS
     Dosage: 200 MILLIGRAM
     Route: 048

REACTIONS (2)
  - BILE DUCT STONE [None]
  - ACUTE MYOCARDIAL INFARCTION [None]
